FAERS Safety Report 25347388 (Version 1)
Quarter: 2025Q2

REPORT INFORMATION
  Report Type: Spontaneous
  Country: DE (occurrence: DE)
  Receive Date: 20250522
  Receipt Date: 20250522
  Transmission Date: 20250717
  Serious: Yes (Hospitalization, Other)
  Sender: PFIZER
  Company Number: DE-PFIZER INC-202500104743

PATIENT
  Age: 31 Year
  Sex: Male

DRUGS (5)
  1. AZULFIDINE [Suspect]
     Active Substance: SULFASALAZINE
     Indication: Colitis ulcerative
     Dosage: 9 G, DAILY
     Dates: start: 1967
  2. AZULFIDINE [Suspect]
     Active Substance: SULFASALAZINE
     Dosage: 6 G, DAILY
     Dates: start: 1968
  3. AZULFIDINE [Suspect]
     Active Substance: SULFASALAZINE
     Dosage: 9 G, DAILY
     Dates: start: 1968
  4. AZULFIDINE [Suspect]
     Active Substance: SULFASALAZINE
     Dates: start: 1969
  5. AZULFIDINE [Suspect]
     Active Substance: SULFASALAZINE
     Dates: start: 1970

REACTIONS (3)
  - Haemolysis [Unknown]
  - Heinz bodies [Unknown]
  - Methaemoglobinaemia [Recovered/Resolved]
